FAERS Safety Report 14222457 (Version 1)
Quarter: 2017Q4

REPORT INFORMATION
  Report Type: Spontaneous
  Country: CN (occurrence: CN)
  Receive Date: 20171124
  Receipt Date: 20171124
  Transmission Date: 20180321
  Serious: Yes (Other)
  Sender: FDA-Public Use
  Company Number: CN-CPL-000092

PATIENT
  Age: 67 Year
  Sex: Female

DRUGS (2)
  1. RIVASTIGMINE/RIVASTIGMINE TARTRATE [Suspect]
     Active Substance: RIVASTIGMINE
     Indication: DEMENTIA ALZHEIMER^S TYPE
     Route: 048
  2. CLOZAPINE. [Concomitant]
     Active Substance: CLOZAPINE
     Indication: SCHIZOPHRENIA
     Dosage: FOR MANY YEARS.

REACTIONS (1)
  - Pleurothotonus [Recovered/Resolved]
